FAERS Safety Report 22243432 (Version 2)
Quarter: 2024Q2

REPORT INFORMATION
  Report Type: Spontaneous
  Country: CA (occurrence: CA)
  Receive Date: 20230424
  Receipt Date: 20240425
  Transmission Date: 20240716
  Serious: Yes (Other)
  Sender: FDA-Public Use
  Company Number: CA-AUROBINDO-AUR-APL-2023-031767

PATIENT
  Age: 61 Year
  Sex: Female
  Weight: 78 kg

DRUGS (6)
  1. CANDESARTAN [Suspect]
     Active Substance: CANDESARTAN
     Indication: Product used for unknown indication
     Dosage: 8 MILLIGRAM, ONCE A DAY
     Route: 048
  2. CARBOPLATIN [Suspect]
     Active Substance: CARBOPLATIN
     Indication: Breast cancer
     Dosage: UNK
     Route: 042
  3. CYTOXAN [Suspect]
     Active Substance: CYCLOPHOSPHAMIDE
     Indication: Breast cancer
     Dosage: UNK
     Route: 065
  4. DOXORUBICIN HYDROCHLORIDE [Suspect]
     Active Substance: DOXORUBICIN HYDROCHLORIDE
     Indication: Breast cancer
     Dosage: UNK
     Route: 065
  5. PEMBROLIZUMAB [Suspect]
     Active Substance: PEMBROLIZUMAB
     Indication: Breast cancer
     Dosage: 200 MILLIGRAM, EVERY OTHER DAY (1 EVERY 3 WEEKS)
     Route: 042
  6. TAXOL [Suspect]
     Active Substance: PACLITAXEL
     Indication: Breast cancer
     Dosage: UNK
     Route: 042

REACTIONS (18)
  - Weight fluctuation [Unknown]
  - Central venous catheterisation [Unknown]
  - Anxiety [Unknown]
  - Cystitis [Unknown]
  - Decreased appetite [Unknown]
  - Depressed mood [Unknown]
  - Dyspepsia [Unknown]
  - Fatigue [Unknown]
  - Gait disturbance [Unknown]
  - Hyperthyroidism [Unknown]
  - Hypothyroidism [Unknown]
  - Malaise [Unknown]
  - Nausea [Unknown]
  - Neuropathy peripheral [Unknown]
  - Pain [Unknown]
  - Somnolence [Unknown]
  - Thyroid disorder [Unknown]
  - Product use issue [Unknown]
